FAERS Safety Report 14045197 (Version 1)
Quarter: 2017Q4

REPORT INFORMATION
  Report Type: Spontaneous
  Country: US (occurrence: US)
  Receive Date: 20171005
  Receipt Date: 20171005
  Transmission Date: 20180321
  Serious: Yes (Other)
  Sender: FDA-Public Use
  Company Number: None

PATIENT
  Age: 72 Year
  Sex: Female

DRUGS (2)
  1. ALCORTIN [Suspect]
     Active Substance: HYDROCORTISONE\IODOQUINOL
     Indication: HAEMORRHOIDS
     Route: 061
     Dates: start: 20171003, end: 20171005
  2. ATORVASTATIN [Concomitant]
     Active Substance: ATORVASTATIN

REACTIONS (2)
  - Palpitations [None]
  - Pollakiuria [None]

NARRATIVE: CASE EVENT DATE: 20171005
